FAERS Safety Report 4489809-6 (Version None)
Quarter: 2004Q4

REPORT INFORMATION
  Report Type: 
  Country: None (occurrence: None)
  Receive Date: 20041101
  Receipt Date: 20041019
  Transmission Date: 20050328
  Serious: Yes (Other)
  Sender: FDA-Public Use
  Company Number: CN-MERCK-0410CHN00033

PATIENT

DRUGS (2)
  1. VIOXX [Suspect]
     Indication: POST PROCEDURAL PAIN
     Route: 048
     Dates: start: 20040803, end: 20040101
  2. FENTANYL [Concomitant]
     Indication: POST PROCEDURAL PAIN
     Route: 061

REACTIONS (5)
  - BUNDLE BRANCH BLOCK RIGHT [None]
  - DYSPHORIA [None]
  - ELECTROCARDIOGRAM T WAVE ABNORMAL [None]
  - INSOMNIA [None]
  - TACHYCARDIA [None]
